FAERS Safety Report 9334238 (Version 1)
Quarter: 2013Q2

REPORT INFORMATION
  Report Type: Spontaneous
  Country: US (occurrence: US)
  Receive Date: 20130606
  Receipt Date: 20130606
  Transmission Date: 20140414
  Serious: No
  Sender: FDA-Public Use
  Company Number: US-ASTRAZENECA-2013SE37109

PATIENT
  Age: 61 Year
  Sex: Female
  Weight: 56.7 kg

DRUGS (4)
  1. METOPROLOL SUCCINATE [Suspect]
     Indication: HYPERTENSION
     Route: 048
  2. CRESTOR [Suspect]
     Indication: BLOOD CHOLESTEROL INCREASED
     Route: 048
     Dates: start: 20130522
  3. GENERIC PLAQUINEL [Concomitant]
     Indication: CUTANEOUS LUPUS ERYTHEMATOSUS
  4. AMLODIPINE [Concomitant]
     Indication: HYPERTENSION

REACTIONS (5)
  - Lip blister [Not Recovered/Not Resolved]
  - Upper-airway cough syndrome [Not Recovered/Not Resolved]
  - Cutaneous lupus erythematosus [Unknown]
  - Lip swelling [Not Recovered/Not Resolved]
  - Paraesthesia oral [Not Recovered/Not Resolved]
